FAERS Safety Report 8828578 (Version 2)
Quarter: 2012Q4

REPORT INFORMATION
  Report Type: 
  Country: FI (occurrence: FI)
  Receive Date: 20121005
  Receipt Date: 20121023
  Transmission Date: 20130627
  Serious: Yes (Hospitalization)
  Sender: FDA-Public Use
  Company Number: FI-ROCHE-1138353

PATIENT
  Age: 46 Year
  Sex: Male

DRUGS (6)
  1. ROACTEMRA [Suspect]
     Indication: RHEUMATOID ARTHRITIS
     Route: 042
     Dates: start: 20081218
  2. UNSPECIFIED INGREDIENT [Suspect]
     Indication: PRODUCT USED FOR UNKNOWN INDICATION
     Route: 065
  3. PREDNISOLON [Concomitant]
     Route: 065
  4. CITALOPRAM [Concomitant]
     Route: 065
  5. SOMAC (FINLAND) [Concomitant]
     Route: 065
  6. CALCIUM CARBONATE/CHOLECALCIFEROL [Concomitant]

REACTIONS (1)
  - Pancreatitis acute [Recovered/Resolved]
